FAERS Safety Report 10811823 (Version 1)
Quarter: 2015Q1

REPORT INFORMATION
  Report Type: Spontaneous
  Country: JP (occurrence: None)
  Receive Date: 20150212
  Receipt Date: 20150212
  Transmission Date: 20150721
  Serious: Yes (Other)
  Sender: FDA-Public Use
  Company Number: 2015HINLIT0133

PATIENT
  Age: 25 Year
  Sex: Female

DRUGS (3)
  1. ZOTEPINE [Suspect]
     Active Substance: ZOTEPINE
     Indication: BIPOLAR DISORDER
     Route: 048
  2. LITHIUM [Suspect]
     Active Substance: LITHIUM CARBONATE
     Indication: BIPOLAR DISORDER
     Route: 048
  3. BIPERIDEN (BIPERIDEN) (BIPERIDIEN) [Suspect]
     Active Substance: BIPERIDEN
     Indication: BIPOLAR DISORDER
     Route: 048

REACTIONS (1)
  - Neuroleptic malignant syndrome [None]
